FAERS Safety Report 17324493 (Version 3)
Quarter: 2022Q2

REPORT INFORMATION
  Report Type: Report from Study
  Country: US (occurrence: US)
  Receive Date: 20200127
  Receipt Date: 20220513
  Transmission Date: 20220721
  Serious: Yes (Hospitalization, Other)
  Sender: FDA-Public Use
  Company Number: US-TEVA-2020-US-1173827

PATIENT
  Age: 30 Year
  Sex: Male

DRUGS (4)
  1. CLOZAPINE [Suspect]
     Active Substance: CLOZAPINE
     Indication: Bipolar disorder
     Route: 065
     Dates: start: 2009
  2. CLOZAPINE [Suspect]
     Active Substance: CLOZAPINE
     Indication: Schizoaffective disorder
     Route: 065
  3. CLOZAPINE [Suspect]
     Active Substance: CLOZAPINE
     Indication: Autism spectrum disorder
  4. TRAZODONE [Concomitant]
     Active Substance: TRAZODONE HYDROCHLORIDE
     Indication: Sleep disorder
     Dosage: PRN
     Route: 065

REACTIONS (8)
  - Lower limb fracture [Unknown]
  - Weight increased [Unknown]
  - Psychotic disorder [Unknown]
  - Depressed mood [Unknown]
  - Insomnia [Unknown]
  - Delayed sleep phase [Unknown]
  - Hypersomnia [Unknown]
  - Irregular sleep phase [Unknown]

NARRATIVE: CASE EVENT DATE: 20180401
